FAERS Safety Report 15992116 (Version 3)
Quarter: 2019Q1

REPORT INFORMATION
  Report Type: Spontaneous
  Country: US (occurrence: US)
  Receive Date: 20190221
  Receipt Date: 20190307
  Transmission Date: 20190418
  Serious: Yes (Other)
  Sender: FDA-Public Use
  Company Number: US-ASTRAZENECA-2018SF64964

PATIENT
  Sex: Male

DRUGS (12)
  1. DOXAZOSIN [Concomitant]
     Active Substance: DOXAZOSIN\DOXAZOSIN MESYLATE
  2. NEXIUM [Suspect]
     Active Substance: ESOMEPRAZOLE MAGNESIUM
     Route: 048
     Dates: start: 20090217
  3. NEXIUM 24HR [Suspect]
     Active Substance: ESOMEPRAZOLE MAGNESIUM
     Route: 048
     Dates: start: 20140428, end: 20141231
  4. GLYBURIDE. [Concomitant]
     Active Substance: GLYBURIDE
  5. PRILOSEC [Suspect]
     Active Substance: OMEPRAZOLE MAGNESIUM
     Route: 048
     Dates: start: 20070101, end: 20120101
  6. METOPROLOL. [Concomitant]
     Active Substance: METOPROLOL
  7. LISINOPRIL. [Concomitant]
     Active Substance: LISINOPRIL
  8. NEXIUM [Suspect]
     Active Substance: ESOMEPRAZOLE MAGNESIUM
     Route: 048
     Dates: start: 20070101, end: 20120101
  9. ASPIRIN. [Concomitant]
     Active Substance: ASPIRIN
  10. RANITIDINE. [Concomitant]
     Active Substance: RANITIDINE
  11. CARVEDILOL. [Concomitant]
     Active Substance: CARVEDILOL
  12. CINNAMON. [Concomitant]
     Active Substance: CINNAMON

REACTIONS (6)
  - Acute kidney injury [Unknown]
  - Chronic kidney disease [Unknown]
  - Renal injury [Unknown]
  - End stage renal disease [Unknown]
  - Renal failure [Unknown]
  - Nephrogenic anaemia [Unknown]
